FAERS Safety Report 5061713-4 (Version None)
Quarter: 2006Q3

REPORT INFORMATION
  Report Type: 
  Country: None (occurrence: None)
  Receive Date: 20060720
  Receipt Date: 20060714
  Transmission Date: 20061208
  Serious: Yes (Hospitalization)
  Sender: FDA-Public Use
  Company Number: HQWYE268419JUN06

PATIENT
  Age: 41 Year
  Sex: Male

DRUGS (12)
  1. RAPAMUNE [Suspect]
     Indication: PROPHYLAXIS AGAINST TRANSPLANT REJECTION
     Dosage: 10 MG 1X PER 1 DAY ORAL
     Route: 048
     Dates: start: 20060329, end: 20060611
  2. CORTICOSTEROID NOS (CORTICOSTEROID NOS,) [Suspect]
     Indication: PROPHYLAXIS AGAINST TRANSPLANT REJECTION
  3. ATORVASTATIN CALCIUM [Concomitant]
  4. MEPREDNISONE (MEPREDNISONE) [Concomitant]
  5. MYCOPHENOLATE MOFETIL [Concomitant]
  6. MYCOPHENOLATE MOFETIL [Concomitant]
  7. FUROSEMIDE [Concomitant]
  8. EPOGEN [Concomitant]
  9. BACTRIM [Concomitant]
  10. LEUCOVORIN (LEUCOVORIN) [Concomitant]
  11. NIFEDIPINE [Concomitant]
  12. OMEPRAZOLE [Concomitant]

REACTIONS (4)
  - COMPLICATIONS OF TRANSPLANTED KIDNEY [None]
  - RENAL FAILURE ACUTE [None]
  - URINARY ANASTOMOTIC LEAK [None]
  - URINOMA [None]
